FAERS Safety Report 4812327-X (Version None)
Quarter: 2005Q4

REPORT INFORMATION
  Report Type: 
  Country: None (occurrence: None)
  Receive Date: 20051026
  Receipt Date: 20051013
  Transmission Date: 20060501
  Serious: Yes (Death)
  Sender: FDA-Public Use
  Company Number: 2005119730

PATIENT
  Age: 70 Year
  Sex: Female
  Weight: 52 kg

DRUGS (4)
  1. VFEND [Suspect]
     Indication: BRONCHOPULMONARY ASPERGILLOSIS
     Dosage: 400 MG (200 MG, 2 IN 1 D), INTRAVENOUS
     Route: 042
     Dates: start: 20050816, end: 20050820
  2. CARBENIN (BETAMIPRON, PANIPENEM) [Concomitant]
  3. MICAFUNGIN (MICAFUNGIN) [Concomitant]
  4. INSULIN [Concomitant]

REACTIONS (12)
  - CARDIAC FAILURE [None]
  - COLOUR BLINDNESS [None]
  - DIABETIC COMPLICATION [None]
  - ERYTHEMA [None]
  - HAEMOPTYSIS [None]
  - HYPERGLYCAEMIA [None]
  - INFECTION IN AN IMMUNOCOMPROMISED HOST [None]
  - PNEUMONIA [None]
  - REFUSAL OF TREATMENT BY PATIENT [None]
  - RESPIRATORY FAILURE [None]
  - SEPTIC SHOCK [None]
  - VISION BLURRED [None]
